FAERS Safety Report 9124352 (Version 1)
Quarter: 2013Q1

REPORT INFORMATION
  Report Type: Spontaneous
  Country: IT (occurrence: IT)
  Receive Date: 20130227
  Receipt Date: 20130227
  Transmission Date: 20140127
  Serious: Yes (Hospitalization)
  Sender: FDA-Public Use
  Company Number: PHHY2013IT017965

PATIENT
  Age: 92 Year
  Sex: Female

DRUGS (6)
  1. AMOXICILLIN [Suspect]
     Indication: OROPHARYNGEAL PAIN
     Dosage: 1 DF, UNK
     Route: 048
     Dates: start: 20130217, end: 20130217
  2. BIVIS [Concomitant]
  3. LASIX [Concomitant]
  4. TRENTAL [Concomitant]
  5. TIKLID [Concomitant]
  6. ANTRA [Concomitant]

REACTIONS (3)
  - Dysphagia [Recovering/Resolving]
  - Dyspnoea [Recovering/Resolving]
  - Tongue oedema [Recovering/Resolving]
